FAERS Safety Report 19991470 (Version 1)
Quarter: 2021Q4

REPORT INFORMATION
  Report Type: Report from Study
  Country: US (occurrence: US)
  Receive Date: 20211025
  Receipt Date: 20211025
  Transmission Date: 20220303
  Serious: Yes (Hospitalization)
  Sender: FDA-Public Use
  Company Number: US-ROCHE-2770192

PATIENT
  Age: 47 Year
  Sex: Female
  Weight: 78.1 kg

DRUGS (32)
  1. CIBISATAMAB [Suspect]
     Active Substance: CIBISATAMAB
     Indication: Colorectal adenocarcinoma
     Dosage: ON 10/FEB/2021, AT 12:55 PM MOST RECENT DOSE OF STUDY (100 MG) DRUG PRIOR TO AE/SAE AND ENDED AT 9:3
     Route: 042
     Dates: start: 20201229
  2. ATEZOLIZUMAB [Suspect]
     Active Substance: ATEZOLIZUMAB
     Indication: Colorectal adenocarcinoma
     Dosage: ON 10/FEB/2021, AT 11:00 AM MOST RECENT DOSE OF STUDY DRUG (1200 MG) PRIOR TO AE/SAE WAS ADMINISTERE
     Route: 042
     Dates: start: 20201229
  3. OBINUTUZUMAB [Suspect]
     Active Substance: OBINUTUZUMAB
     Indication: Colorectal adenocarcinoma
     Dosage: AS EITHER A SPLIT OR SINGLE DOSE APPROXIMATELY 2 WEEKS BEFORE CYCLE 1, DAY 1 (CYCLE = 21 DAYS)?ON 16
     Route: 042
     Dates: start: 20201215
  4. LEVOTHYROXINE [Concomitant]
     Active Substance: LEVOTHYROXINE
     Indication: Hypothyroidism
     Dates: start: 19970901
  5. PROZAC [Concomitant]
     Active Substance: FLUOXETINE HYDROCHLORIDE
     Indication: Depression
  6. VITAMIN B6 [Concomitant]
     Active Substance: PYRIDOXINE HYDROCHLORIDE
     Indication: Neuropathy peripheral
     Dates: start: 20201111
  7. MIRALAX [Concomitant]
     Active Substance: POLYETHYLENE GLYCOL 3350
     Indication: Constipation
     Dosage: ORAL POWDER
     Route: 048
  8. MELATONIN [Concomitant]
     Active Substance: MELATONIN
     Dosage: FOR SLEEP
  9. VALACYCLOVIR [Concomitant]
     Active Substance: VALACYCLOVIR HYDROCHLORIDE
     Indication: Antiviral treatment
     Dates: start: 20210106
  10. BIOTIN [Concomitant]
     Active Substance: BIOTIN
     Indication: Dysgeusia
  11. DRONABINOL [Concomitant]
     Active Substance: DRONABINOL
     Route: 048
     Dates: start: 20210106, end: 20210112
  12. CLONAZEPAM [Concomitant]
     Active Substance: CLONAZEPAM
     Dates: start: 20210106, end: 20210113
  13. METHYLPREDNISOLONE [Concomitant]
     Active Substance: METHYLPREDNISOLONE
     Indication: Premedication
     Route: 042
     Dates: start: 20210120, end: 20210120
  14. METHYLPREDNISOLONE [Concomitant]
     Active Substance: METHYLPREDNISOLONE
     Route: 042
     Dates: start: 20210210, end: 20210210
  15. DIPHENHYDRAMINE [Concomitant]
     Active Substance: DIPHENHYDRAMINE
     Indication: Premedication
     Route: 042
     Dates: start: 20210120, end: 20210120
  16. DIPHENHYDRAMINE [Concomitant]
     Active Substance: DIPHENHYDRAMINE
     Route: 042
     Dates: start: 20210210, end: 20210210
  17. INDOMETHACIN [Concomitant]
     Active Substance: INDOMETHACIN
     Route: 048
     Dates: start: 20210119, end: 20210121
  18. INDOMETHACIN [Concomitant]
     Active Substance: INDOMETHACIN
     Route: 048
     Dates: start: 20210209, end: 20210210
  19. ACETAMINOPHEN [Concomitant]
     Active Substance: ACETAMINOPHEN
     Route: 048
     Dates: start: 20210120, end: 20210120
  20. ACETAMINOPHEN [Concomitant]
     Active Substance: ACETAMINOPHEN
     Route: 048
     Dates: start: 20210210, end: 20210210
  21. ACETAMINOPHEN [Concomitant]
     Active Substance: ACETAMINOPHEN
     Route: 048
     Dates: start: 20201231
  22. FAMOTIDINE [Concomitant]
     Active Substance: FAMOTIDINE
     Route: 048
     Dates: start: 20210119, end: 20210122
  23. FAMOTIDINE [Concomitant]
     Active Substance: FAMOTIDINE
     Route: 048
     Dates: start: 20210209, end: 20210209
  24. DIPHENHYDRAMINE [Concomitant]
     Active Substance: DIPHENHYDRAMINE
     Route: 042
     Dates: start: 20210120, end: 20210120
  25. DIPHENHYDRAMINE [Concomitant]
     Active Substance: DIPHENHYDRAMINE
     Route: 042
     Dates: start: 20210210, end: 20210210
  26. FIORICET [Concomitant]
     Active Substance: ACETAMINOPHEN\BUTALBITAL\CAFFEINE
     Indication: Headache
     Route: 048
     Dates: start: 20210122, end: 20210128
  27. ZOFRAN [Concomitant]
     Active Substance: ONDANSETRON HYDROCHLORIDE
     Indication: Nausea
     Route: 048
     Dates: start: 20210121, end: 20210123
  28. ATIVAN [Concomitant]
     Active Substance: LORAZEPAM
     Indication: Nausea
     Route: 048
     Dates: start: 20210121, end: 20210122
  29. ADVIL [Concomitant]
     Active Substance: IBUPROFEN
     Indication: Pyrexia
     Dates: start: 20210109, end: 20210123
  30. ADVIL [Concomitant]
     Active Substance: IBUPROFEN
     Indication: Pain
  31. IMODIUM [Concomitant]
     Active Substance: LOPERAMIDE HYDROCHLORIDE
     Indication: Diarrhoea
     Dates: start: 20210121, end: 20210122
  32. TYLENOL [Concomitant]
     Active Substance: ACETAMINOPHEN
     Indication: Myalgia
     Dates: start: 20210115, end: 20210123

REACTIONS (1)
  - Electrocardiogram ST segment depression [Recovered/Resolved]

NARRATIVE: CASE EVENT DATE: 20210211
